FAERS Safety Report 14530080 (Version 2)
Quarter: 2018Q2

REPORT INFORMATION
  Report Type: Spontaneous
  Country: JP (occurrence: JP)
  Receive Date: 20180214
  Receipt Date: 20180529
  Transmission Date: 20180711
  Serious: Yes (Life-Threatening, Hospitalization)
  Sender: FDA-Public Use
  Company Number: JP-PFIZER INC-2018063846

PATIENT
  Age: 59 Year
  Sex: Female
  Weight: 45 kg

DRUGS (7)
  1. CAMPTO [Suspect]
     Active Substance: IRINOTECAN
     Indication: COLON CANCER
     Dosage: 200 MG, 1X/DAY (144.6 MG/M2),
     Route: 041
     Dates: start: 20180203, end: 20180203
  2. DECADRON [Concomitant]
     Active Substance: DEXAMETHASONE
     Dosage: UNK
     Dates: start: 20180203, end: 20180203
  3. AFLIBERCEPT [Concomitant]
     Active Substance: AFLIBERCEPT
     Dosage: 180 MG, UNK
     Dates: start: 20180203
  4. LEVOFOLINATE CALCIUM [Concomitant]
     Active Substance: LEVOLEUCOVORIN CALCIUM
     Dosage: 275 MG, UNK (198.8 MG/M2)
     Dates: start: 20180203, end: 20180203
  5. 5-FU [Concomitant]
     Active Substance: FLUOROURACIL
     Dosage: 3250 MG/BODY/D1-2, UNK (2350 MG/M2/D1-2)
     Dates: start: 20180203, end: 20180203
  6. KYTRIL [Concomitant]
     Active Substance: GRANISETRON HYDROCHLORIDE
     Dosage: UNK
     Dates: start: 20180203, end: 20180203
  7. ZALTRAP [Suspect]
     Active Substance: ZIV-AFLIBERCEPT
     Indication: COLON CANCER
     Dosage: 180 MG, 1X/DAY (180 MG/BODY)
     Route: 041
     Dates: start: 20180203, end: 20180203

REACTIONS (4)
  - Hyperventilation [Recovering/Resolving]
  - Dizziness [Recovering/Resolving]
  - Ventricular arrhythmia [Recovered/Resolved]
  - Vomiting [Recovering/Resolving]

NARRATIVE: CASE EVENT DATE: 20180205
